FAERS Safety Report 9678236 (Version 1)
Quarter: 2013Q4

REPORT INFORMATION
  Report Type: Report from Study
  Country: CA (occurrence: CA)
  Receive Date: 20131108
  Receipt Date: 20131108
  Transmission Date: 20140711
  Serious: Yes (Other)
  Sender: FDA-Public Use
  Company Number: CA-JNJFOC-20131103902

PATIENT
  Sex: Male
  Weight: 93 kg

DRUGS (13)
  1. REMICADE [Suspect]
     Indication: RHEUMATOID ARTHRITIS
     Dosage: PATIENT HAD 76 INFLIXIMAB INFUSIONS
     Route: 042
     Dates: start: 20041101
  2. TYLENOL [Concomitant]
     Route: 065
  3. FOLIC ACID [Concomitant]
     Route: 065
  4. SYNTHROID [Concomitant]
     Route: 065
  5. LIPITOR [Concomitant]
     Route: 065
  6. METOPROLOL [Concomitant]
     Route: 065
  7. NORVASC [Concomitant]
     Route: 065
  8. METFORMIN [Concomitant]
     Route: 065
  9. GLYBURIDE [Concomitant]
     Route: 065
  10. METHOTREXATE [Concomitant]
     Route: 065
  11. VITAMINE E [Concomitant]
     Route: 065
  12. MULTIVITAMINS [Concomitant]
     Route: 065
  13. CANDESARTAN CILEXETIL [Concomitant]
     Route: 065

REACTIONS (1)
  - Blood creatinine increased [Unknown]
